FAERS Safety Report 7715750-9 (Version None)
Quarter: 2011Q3

REPORT INFORMATION
  Report Type: 
  Country: None (occurrence: None)
  Receive Date: 20110829
  Receipt Date: 20110826
  Transmission Date: 20111222
  Serious: Yes (Life-Threatening, Hospitalization)
  Sender: FDA-Public Use
  Company Number: GB-PFIZER INC-2011198933

PATIENT
  Age: 35 Year
  Sex: Female

DRUGS (1)
  1. CARBOPROST TROMETAMOL [Suspect]
     Indication: HAEMORRHAGE
     Dosage: 1.4 MG, SINGLE
     Route: 030
     Dates: start: 20110804, end: 20110804

REACTIONS (1)
  - CIRCULATORY COLLAPSE [None]
